FAERS Safety Report 8456460-2 (Version None)
Quarter: 2012Q2

REPORT INFORMATION
  Report Type: 
  Country: None (occurrence: None)
  Receive Date: 20120621
  Receipt Date: 20120524
  Transmission Date: 20120825
  Serious: Yes (Death, Hospitalization)
  Sender: FDA-Public Use
  Company Number: ES-ROCHE-1078345

PATIENT
  Age: 53 Year
  Sex: Female

DRUGS (6)
  1. RIBAVIRIN [Suspect]
     Indication: HEPATITIS C
     Route: 065
     Dates: start: 20120101, end: 20120523
  2. PEGASYS [Suspect]
     Indication: HEPATITIS C
     Route: 058
     Dates: start: 20120101, end: 20120523
  3. PEGASYS [Suspect]
     Indication: HEPATIC CIRRHOSIS
  4. RIBAVIRIN [Suspect]
     Indication: HEPATIC CIRRHOSIS
  5. VICTRELIS [Suspect]
     Indication: HEPATITIS C
     Route: 065
     Dates: start: 20120101, end: 20120523
  6. VICTRELIS [Suspect]
     Indication: HEPATIC CIRRHOSIS

REACTIONS (4)
  - HEPATIC FAILURE [None]
  - PNEUMONIA [None]
  - SEPSIS [None]
  - RENAL FAILURE [None]
